FAERS Safety Report 6714464-1 (Version None)
Quarter: 2010Q2

REPORT INFORMATION
  Report Type: 
  Country: None (occurrence: None)
  Receive Date: 20100506
  Receipt Date: 20100426
  Transmission Date: 20101027
  Serious: Yes (Hospitalization)
  Sender: FDA-Public Use
  Company Number: GB-WATSON-2010-05750

PATIENT
  Age: 30 Year
  Sex: Male

DRUGS (1)
  1. QUININE SULFATE (WATSON LABORATORIES) [Suspect]
     Indication: MUSCLE SPASMS
     Dosage: 300 MG, QHS
     Route: 048

REACTIONS (1)
  - HYPOGLYCAEMIC SEIZURE [None]
